FAERS Safety Report 23866952 (Version 2)
Quarter: 2024Q2

REPORT INFORMATION
  Report Type: Spontaneous
  Country: FR (occurrence: FR)
  Receive Date: 20240517
  Receipt Date: 20240617
  Transmission Date: 20240715
  Serious: Yes (Other)
  Sender: FDA-Public Use
  Company Number: FR-MYLANLABS-2024M1043499

PATIENT
  Age: 84 Year
  Sex: Male

DRUGS (1)
  1. ABIRATERONE [Suspect]
     Active Substance: ABIRATERONE
     Indication: Hormone-dependent prostate cancer
     Dosage: UNK
     Route: 065
     Dates: end: 20240507

REACTIONS (4)
  - Rhabdomyolysis [Unknown]
  - Bedridden [Unknown]
  - Liver function test abnormal [Unknown]
  - Fall [Unknown]

NARRATIVE: CASE EVENT DATE: 20240507
